FAERS Safety Report 6998855-X (Version None)
Quarter: 2010Q3

REPORT INFORMATION
  Report Type: 
  Country: None (occurrence: None)
  Receive Date: 20100920
  Receipt Date: 20100204
  Transmission Date: 20110219
  Serious: Yes (Other)
  Sender: FDA-Public Use
  Company Number: US-ASTRAZENECA-2010SE05189

PATIENT
  Age: 40 Year
  Sex: Female

DRUGS (4)
  1. SEROQUEL [Suspect]
     Route: 048
  2. LEVOTHYROXINE [Concomitant]
  3. BUTALBITAL [Concomitant]
  4. TRANXENE [Concomitant]

REACTIONS (1)
  - CONVULSION [None]
